FAERS Safety Report 25956774 (Version 1)
Quarter: 2025Q4

REPORT INFORMATION
  Report Type: Other
  Country: EU (occurrence: EU)
  Receive Date: 20251024
  Receipt Date: 20251024
  Transmission Date: 20260118
  Serious: Yes (Other)
  Sender: EMD SERONO INC
  Company Number: EU-Merck Healthcare KGaA-2025052604

PATIENT
  Age: 53 Year
  Sex: Female

DRUGS (1)
  1. INTERFERON BETA-1A [Suspect]
     Active Substance: INTERFERON BETA-1A
     Indication: Multiple sclerosis

REACTIONS (5)
  - Bone marrow plasmacyte count increased [Unknown]
  - Focal segmental glomerulosclerosis [Unknown]
  - Thrombotic microangiopathy [Unknown]
  - Leukopenia [Unknown]
  - Anaemia [Unknown]
